FAERS Safety Report 9004792 (Version 1)
Quarter: 2012Q4

REPORT INFORMATION
  Report Type: Spontaneous
  Country: DE (occurrence: None)
  Receive Date: 20121227
  Receipt Date: 20121227
  Transmission Date: 20130627
  Serious: Yes (Hospitalization, Other)
  Sender: FDA-Public Use
  Company Number: AUR-APL-2012-05489

PATIENT
  Sex: Female
  Weight: 2.62 kg

DRUGS (2)
  1. PAROXETINE (PAROXETINE) [Suspect]
     Indication: DEPRESSION
     Route: 064
  2. BALDRIAN (VALERIANA OFFICIALIS ROOT) [Concomitant]

REACTIONS (8)
  - Caesarean section [None]
  - Foetal heart rate deceleration [None]
  - Premature baby [None]
  - Neonatal disorder [None]
  - Vomiting neonatal [None]
  - Hypotonia neonatal [None]
  - Feeding disorder neonatal [None]
  - Maternal drugs affecting foetus [None]
